FAERS Safety Report 8048920-3 (Version None)
Quarter: 2012Q1

REPORT INFORMATION
  Report Type: 
  Country: None (occurrence: None)
  Receive Date: 20120117
  Receipt Date: 20120106
  Transmission Date: 20120608
  Serious: Yes (Hospitalization, Other)
  Sender: FDA-Public Use
  Company Number: FR-PFIZER INC-2011311710

PATIENT
  Age: 77 Year
  Sex: Male

DRUGS (1)
  1. METHYLPREDNISOLONE [Suspect]
     Indication: CHRONIC LYMPHOCYTIC LEUKAEMIA
     Dosage: 80 MG, 1X/DAY
     Dates: start: 20090701, end: 20090901

REACTIONS (6)
  - PSYCHOTIC DISORDER [None]
  - SLEEP DISORDER [None]
  - MAJOR DEPRESSION [None]
  - CHRONIC LYMPHOCYTIC LEUKAEMIA [None]
  - SUICIDAL IDEATION [None]
  - HOMICIDE [None]
